APPROVED DRUG PRODUCT: KAPSPARGO SPRINKLE
Active Ingredient: METOPROLOL SUCCINATE
Strength: EQ 100MG TARTRATE
Dosage Form/Route: CAPSULE, EXTENDED RELEASE;ORAL
Application: N210428 | Product #003
Applicant: SUN PHARMA INDUSTRIES LTD
Approved: Jan 26, 2018 | RLD: Yes | RS: No | Type: RX

PATENTS:
Patent 9504655 | Expires: Jul 9, 2035
Patent 9700530 | Expires: Jul 9, 2035